FAERS Safety Report 9948837 (Version 2)
Quarter: 2014Q1

REPORT INFORMATION
  Report Type: Spontaneous
  Country: US (occurrence: US)
  Receive Date: 20140304
  Receipt Date: 20140318
  Transmission Date: 20141002
  Serious: Yes (Hospitalization)
  Sender: FDA-Public Use
  Company Number: US-BIOGENIDEC-2014BI017497

PATIENT
  Age: 34 Year
  Sex: Male

DRUGS (16)
  1. TECFIDERA [Suspect]
     Indication: MULTIPLE SCLEROSIS
     Route: 048
     Dates: start: 20130716
  2. TECFIDERA [Suspect]
     Indication: MULTIPLE SCLEROSIS
     Route: 048
  3. OXYCODONE [Concomitant]
     Indication: PAIN
  4. SINGULAIR [Concomitant]
  5. NEXIUM [Concomitant]
  6. COUMADIN [Concomitant]
  7. NIASPAN ER [Concomitant]
  8. LAMICTAL [Concomitant]
  9. SEROQUEL [Concomitant]
  10. CRESTOR [Concomitant]
  11. ARTANE [Concomitant]
  12. METFORMIN [Concomitant]
  13. LISINOPRIL [Concomitant]
  14. GLIPIZIDE [Concomitant]
  15. FLEXERIL [Concomitant]
  16. XANAX [Concomitant]

REACTIONS (2)
  - Psychogenic seizure [Unknown]
  - Underdose [Unknown]
